FAERS Safety Report 7913691-5 (Version None)
Quarter: 2011Q4

REPORT INFORMATION
  Report Type: 
  Country: None (occurrence: None)
  Receive Date: 20111110
  Receipt Date: 20111028
  Transmission Date: 20120403
  Serious: Yes (Death, Hospitalization)
  Sender: FDA-Public Use
  Company Number: 2011CP000179

PATIENT
  Age: 65 Year
  Sex: Male

DRUGS (12)
  1. CLOXACILLIN SODIUM [Concomitant]
  2. MORPHINE [Concomitant]
  3. ACETAMINOPHEN [Suspect]
     Dosage: 40 MG;
     Dates: start: 20041211, end: 20041214
  4. PROPOFOL [Concomitant]
  5. SOLU-CORTEF [Concomitant]
  6. KETOGAN NOVUM [Concomitant]
  7. TRAMADOL HCL [Concomitant]
  8. SEVOFLURANE [Suspect]
     Dosage: INH
     Route: 055
     Dates: start: 20041214, end: 20041201
  9. FENTANYL [Concomitant]
  10. ACETAMINOPHEN [Suspect]
     Indication: PROPHYLAXIS
     Dosage: 400 ML;3 TIMES; IV
     Route: 042
     Dates: start: 20041209, end: 20041214
  11. FRAGMIN [Concomitant]
  12. BETAPRED [Concomitant]

REACTIONS (2)
  - HEPATIC FAILURE [None]
  - RENAL FAILURE ACUTE [None]
